FAERS Safety Report 22059060 (Version 1)
Quarter: 2023Q1

REPORT INFORMATION
  Report Type: Spontaneous
  Country: US (occurrence: None)
  Receive Date: 20230302
  Receipt Date: 20230302
  Transmission Date: 20230417
  Serious: Yes (Hospitalization, Other)
  Sender: FDA-Public Use
  Company Number: None

PATIENT
  Sex: Male

DRUGS (2)
  1. EVEROLIMUS [Suspect]
     Active Substance: EVEROLIMUS
     Dosage: FREQUENCY : DAILY;?
     Route: 048
  2. LENVIMA [Concomitant]

REACTIONS (10)
  - Gastrointestinal disorder [None]
  - Pneumonia [None]
  - Syncope [None]
  - Blood pressure decreased [None]
  - Therapy interrupted [None]
  - Diarrhoea [None]
  - Mouth ulceration [None]
  - Fatigue [None]
  - Dehydration [None]
  - Decreased appetite [None]
